FAERS Safety Report 25132435 (Version 1)
Quarter: 2025Q1

REPORT INFORMATION
  Report Type: Spontaneous
  Country: US (occurrence: US)
  Receive Date: 20250328
  Receipt Date: 20250328
  Transmission Date: 20250409
  Serious: No
  Sender: AUROBINDO
  Company Number: US-AUROBINDO-AUR-APL-2024-029379

PATIENT
  Age: 55 Year
  Sex: Male
  Weight: 86.18 kg

DRUGS (1)
  1. CELECOXIB [Suspect]
     Active Substance: CELECOXIB
     Indication: Pain
     Dosage: UNK, ONCE A DAY
     Route: 065
     Dates: start: 20240427

REACTIONS (2)
  - Drug ineffective [Unknown]
  - Product substitution issue [Unknown]
